FAERS Safety Report 16133834 (Version 2)
Quarter: 2019Q2

REPORT INFORMATION
  Report Type: Report from Study
  Country: JP (occurrence: JP)
  Receive Date: 20190329
  Receipt Date: 20190424
  Transmission Date: 20190711
  Serious: Yes (Death, Life-Threatening)
  Sender: FDA-Public Use
  Company Number: JP-ROCHE-2290661

PATIENT
  Age: 84 Year
  Sex: Male
  Weight: 52 kg

DRUGS (1)
  1. ATEZOLIZUMAB. [Suspect]
     Active Substance: ATEZOLIZUMAB
     Indication: NON-SMALL CELL LUNG CANCER
     Route: 041
     Dates: start: 20190215, end: 20190308

REACTIONS (3)
  - Interstitial lung disease [Fatal]
  - Pneumonia bacterial [Not Recovered/Not Resolved]
  - Pneumocystis jirovecii pneumonia [Fatal]

NARRATIVE: CASE EVENT DATE: 20190315
